FAERS Safety Report 7277157-0 (Version None)
Quarter: 2011Q1

REPORT INFORMATION
  Report Type: 
  Country: None (occurrence: None)
  Receive Date: 20110202
  Receipt Date: 20110202
  Transmission Date: 20110831
  Serious: Yes (Hospitalization)
  Sender: FDA-Public Use
  Company Number: None

PATIENT
  Age: 81 Year
  Sex: Male
  Weight: 75.5 kg

DRUGS (2)
  1. VICTOZA [Suspect]
     Indication: DIABETES MELLITUS
     Dosage: .6 MG VICTOZA ONCE PER DAY SHOT IN THE BELLY AREA
     Dates: start: 20110109
  2. GLUCOTROL [Suspect]
     Indication: DIABETES MELLITUS
     Dosage: 10 MG GLUCOTROL (GLIPIZIDE) TWICE A DAY ORALLY
     Route: 048
     Dates: start: 19980101

REACTIONS (5)
  - BLOOD GLUCOSE DECREASED [None]
  - INCORRECT DOSE ADMINISTERED [None]
  - DRUG INTERACTION [None]
  - TREATMENT NONCOMPLIANCE [None]
  - DRUG LEVEL CHANGED [None]
